FAERS Safety Report 9719933 (Version 3)
Quarter: 2014Q1

REPORT INFORMATION
  Report Type: Spontaneous
  Country: JP (occurrence: JP)
  Receive Date: 20131128
  Receipt Date: 20140226
  Transmission Date: 20141002
  Serious: Yes (Other)
  Sender: FDA-Public Use
  Company Number: JP-JNJFOC-20131114516

PATIENT
  Age: 80 Year
  Sex: Male

DRUGS (2)
  1. TRAMCET [Suspect]
     Indication: PAIN
     Dosage: ONCE A DAY
     Route: 048
     Dates: start: 20131016, end: 20131119
  2. MYSLEE [Concomitant]
     Route: 048

REACTIONS (1)
  - Loss of consciousness [Recovered/Resolved]
